FAERS Safety Report 4988439-7 (Version None)
Quarter: 2006Q2

REPORT INFORMATION
  Report Type: 
  Country: None (occurrence: None)
  Receive Date: 20060502
  Receipt Date: 20060426
  Transmission Date: 20061013
  Serious: Yes (Hospitalization)
  Sender: FDA-Public Use
  Company Number: US-BRISTOL-MYERS SQUIBB COMPANY-13358361

PATIENT
  Age: 70 Year
  Sex: Male

DRUGS (4)
  1. ERBITUX [Suspect]
     Indication: OESOPHAGEAL ADENOCARCINOMA
     Dosage: 400 MG/M2 WK 1, 250 MG/M2 WK 2-6. TOTAL DOSE 3750 MG.
     Dates: start: 20060124, end: 20060124
  2. CARBOPLATIN [Suspect]
     Indication: OESOPHAGEAL ADENOCARCINOMA
     Dosage: GIVEN AT AUC 2, TOTAL DOSE 1242 MG.
     Dates: start: 20060124, end: 20060124
  3. PACLITAXEL [Suspect]
     Indication: OESOPHAGEAL ADENOCARCINOMA
     Dosage: TOTAL DOSE: 681 MG. WEEKLY X 6.
     Dates: start: 20060124, end: 20060124
  4. RADIATION THERAPY [Suspect]
     Indication: OESOPHAGEAL ADENOCARCINOMA
     Dosage: RECEIVED TOTAL OF 50.4 GY/28 FRACTIONS.
     Dates: start: 20060124, end: 20060124

REACTIONS (2)
  - GASTROINTESTINAL ANASTOMOTIC LEAK [None]
  - INFECTION [None]
